FAERS Safety Report 7279455-3 (Version None)
Quarter: 2011Q1

REPORT INFORMATION
  Report Type: 
  Country: None (occurrence: None)
  Receive Date: 20110208
  Receipt Date: 20110131
  Transmission Date: 20110831
  Serious: No
  Sender: FDA-Public Use
  Company Number: US-BIOGENIDEC-2011BI004166

PATIENT
  Age: 52 Year
  Sex: Male

DRUGS (1)
  1. AVONEX [Suspect]
     Indication: MULTIPLE SCLEROSIS
     Route: 030
     Dates: start: 20101207

REACTIONS (5)
  - ASTHENIA [None]
  - MIGRAINE [None]
  - BALANCE DISORDER [None]
  - DRUG EFFECT DECREASED [None]
  - VISION BLURRED [None]
